FAERS Safety Report 11128532 (Version 10)
Quarter: 2018Q2

REPORT INFORMATION
  Report Type: Report from Study
  Country: JP (occurrence: JP)
  Receive Date: 20150521
  Receipt Date: 20180607
  Transmission Date: 20180711
  Serious: Yes (Death, Hospitalization, Other)
  Sender: FDA-Public Use
  Company Number: JP-INCYTE CORPORATION-2015IN002181

PATIENT

DRUGS (8)
  1. JAKAVI [Suspect]
     Active Substance: RUXOLITINIB
     Dosage: 10 MG, BID
     Route: 048
     Dates: start: 20141203, end: 20150120
  2. JAKAVI [Suspect]
     Active Substance: RUXOLITINIB
     Dosage: 15 MG, BID
     Route: 048
     Dates: start: 20150121, end: 20150219
  3. IRRADIATED FROZEN THAWED RED CELLS [Concomitant]
     Indication: MYELOFIBROSIS
     Dosage: 2 IU, QD
     Route: 065
     Dates: end: 20150327
  4. ISCOTIN [Concomitant]
     Active Substance: ISONIAZID
     Indication: PRODUCT USED FOR UNKNOWN INDICATION
     Dosage: 300 MG, QD
     Route: 048
     Dates: start: 20141125, end: 20150312
  5. PRIMOBOLAN-DEPOT [Concomitant]
     Active Substance: METHENOLONE ENANTHATE
     Indication: MYELOFIBROSIS
     Dosage: 30 MG, QD
     Route: 048
     Dates: end: 20150106
  6. JAKAVI [Suspect]
     Active Substance: RUXOLITINIB
     Indication: PRIMARY MYELOFIBROSIS
     Dosage: 5 MG, BID
     Route: 048
     Dates: start: 20141125, end: 20141202
  7. JAKAVI [Suspect]
     Active Substance: RUXOLITINIB
     Dosage: 20 MG, BID
     Route: 048
     Dates: start: 20150220, end: 20150227
  8. ACICLOVIN [Concomitant]
     Active Substance: ACYCLOVIR
     Indication: PRODUCT USED FOR UNKNOWN INDICATION
     Dosage: 200 MG, QD
     Route: 048
     Dates: start: 20141125, end: 20150226

REACTIONS (20)
  - Blood creatinine increased [Unknown]
  - Disseminated cryptococcosis [Recovering/Resolving]
  - Coma [Unknown]
  - Pyrexia [Fatal]
  - Acute kidney injury [Fatal]
  - Alanine aminotransferase increased [Recovering/Resolving]
  - Bone marrow failure [Fatal]
  - Eosinophil count increased [Unknown]
  - Meningitis cryptococcal [Fatal]
  - Blood pressure diastolic decreased [Unknown]
  - Hyponatraemia [Recovering/Resolving]
  - Aspartate aminotransferase increased [Recovering/Resolving]
  - White blood cell count increased [Not Recovered/Not Resolved]
  - Cardiac failure congestive [Recovering/Resolving]
  - Generalised oedema [Recovering/Resolving]
  - Myelofibrosis [Fatal]
  - Blood bilirubin increased [Fatal]
  - Depressed level of consciousness [Fatal]
  - Renal impairment [Fatal]
  - Thrombocytopenia [Fatal]

NARRATIVE: CASE EVENT DATE: 20141126
